FAERS Safety Report 5130184-1 (Version None)
Quarter: 2006Q4

REPORT INFORMATION
  Report Type: 
  Country: None (occurrence: None)
  Receive Date: 20061013
  Receipt Date: 20060926
  Transmission Date: 20070319
  Serious: Yes (Hospitalization)
  Sender: FDA-Public Use
  Company Number: US200608004962

PATIENT
  Age: 74 Year
  Sex: Female
  Weight: 77.6 kg

DRUGS (8)
  1. HUMULIN N [Suspect]
     Indication: DIABETES MELLITUS
     Dosage: 25 U,
     Dates: start: 19990101, end: 20060703
  2. ACTOS [Concomitant]
  3. NTG (GLYCERYL TRINITRATE) [Concomitant]
  4. SPIRONOLACTONE [Concomitant]
  5. COZAAR [Concomitant]
  6. LASIX [Concomitant]
  7. BUPROPION HCL [Concomitant]
  8. GUAIFENESIN [Concomitant]

REACTIONS (2)
  - ADHESION [None]
  - INTESTINAL ISCHAEMIA [None]
